FAERS Safety Report 5973106-3 (Version None)
Quarter: 2008Q4

REPORT INFORMATION
  Report Type: 
  Country: None (occurrence: None)
  Receive Date: 20081201
  Receipt Date: 20081119
  Transmission Date: 20090506
  Serious: Yes (Hospitalization)
  Sender: FDA-Public Use
  Company Number: US-ROCHE-598227

PATIENT
  Sex: Male

DRUGS (2)
  1. PEG-INTERFERON A-2A (RO 25-8310) [Suspect]
     Dosage: FORM: PRE FILLED SYRINGE
     Route: 065
     Dates: start: 20080608, end: 20081108
  2. RIBASPHERE [Suspect]
     Route: 065
     Dates: start: 20080608, end: 20081108

REACTIONS (1)
  - LYMPHOMA [None]
